FAERS Safety Report 22857397 (Version 2)
Quarter: 2023Q4

REPORT INFORMATION
  Report Type: Spontaneous
  Country: US (occurrence: US)
  Receive Date: 20230823
  Receipt Date: 20231117
  Transmission Date: 20240110
  Serious: No
  Sender: FDA-Public Use
  Company Number: US-Stemline Therapeutics, Inc.-2023ST001315

PATIENT
  Age: 65 Year
  Sex: Female

DRUGS (2)
  1. ORSERDU [Suspect]
     Active Substance: ELACESTRANT
     Indication: Product used for unknown indication
     Route: 048
     Dates: start: 20230519
  2. ORSERDU [Suspect]
     Active Substance: ELACESTRANT
     Route: 048
     Dates: start: 20230519

REACTIONS (8)
  - Therapy responder [Unknown]
  - SARS-CoV-2 test positive [Unknown]
  - Balance disorder [Unknown]
  - Gait disturbance [Unknown]
  - Product dose omission in error [Unknown]
  - Post-acute COVID-19 syndrome [Unknown]
  - Asthenia [Unknown]
  - Fatigue [Not Recovered/Not Resolved]

NARRATIVE: CASE EVENT DATE: 20230901
